FAERS Safety Report 6182207-9 (Version None)
Quarter: 2009Q2

REPORT INFORMATION
  Report Type: 
  Country: None (occurrence: None)
  Receive Date: 20090507
  Receipt Date: 20090501
  Transmission Date: 20091009
  Serious: Yes (Other)
  Sender: FDA-Public Use
  Company Number: US-ASTRAZENECA-2009UW11242

PATIENT

DRUGS (2)
  1. PRILOSEC [Suspect]
     Route: 048
  2. PLAVIX [Interacting]
     Route: 065

REACTIONS (2)
  - DRUG INTERACTION [None]
  - STENT OCCLUSION [None]
